FAERS Safety Report 16649061 (Version 1)
Quarter: 2019Q3

REPORT INFORMATION
  Report Type: Spontaneous
  Country: JP (occurrence: JP)
  Receive Date: 20190730
  Receipt Date: 20190730
  Transmission Date: 20191004
  Serious: Yes (Other)
  Sender: FDA-Public Use
  Company Number: PHJP2019JP009958

PATIENT
  Sex: Male

DRUGS (1)
  1. ZYKADIA [Suspect]
     Active Substance: CERITINIB
     Indication: NON-SMALL CELL LUNG CANCER
     Dosage: UNK
     Route: 048
     Dates: start: 201905, end: 201906

REACTIONS (3)
  - Non-small cell lung cancer [Unknown]
  - Malignant neoplasm progression [Unknown]
  - Dermatomyositis [Unknown]

NARRATIVE: CASE EVENT DATE: 201905
